FAERS Safety Report 17471998 (Version 8)
Quarter: 2021Q1

REPORT INFORMATION
  Report Type: Other
  Country: AT (occurrence: AT)
  Receive Date: 20200228
  Receipt Date: 20210203
  Transmission Date: 20210419
  Serious: Yes (Hospitalization, Other)
  Sender: FDA-Public Use
  Company Number: AT-ROCHE-2288518

PATIENT
  Age: 40 Year
  Sex: Female
  Weight: 60 kg

DRUGS (17)
  1. DRONABINOL. [Concomitant]
     Active Substance: DRONABINOL
     Dosage: ONGOING = NOT CHECKED
     Dates: end: 20191116
  2. CIPROXIN [Concomitant]
     Active Substance: CIPROFLOXACIN
     Dosage: ONGOING = NOT CHECKED
     Dates: end: 20191110
  3. PERTUZUMAB. [Suspect]
     Active Substance: PERTUZUMAB
     Indication: BREAST CANCER METASTATIC
     Dosage: MOST RECENT DOSE PRIOR TO THE EVENT: 17/MAY/2018
     Route: 042
     Dates: start: 20180425
  4. CAPECITABINE. [Suspect]
     Active Substance: CAPECITABINE
     Indication: BREAST CANCER METASTATIC
     Route: 048
     Dates: start: 20190724
  5. DOCETAXEL. [Suspect]
     Active Substance: DOCETAXEL
     Indication: BREAST CANCER METASTATIC
     Route: 042
     Dates: start: 20180426, end: 20180817
  6. ENTEROBENE [Concomitant]
     Indication: DIARRHOEA
     Dosage: ONGOING = NOT CHECKED
     Dates: start: 20180611, end: 20191116
  7. ZOFRAN [Concomitant]
     Active Substance: ONDANSETRON HYDROCHLORIDE
     Dosage: ONGOING = NOT CHECKED
     Dates: start: 20180426, end: 20180817
  8. DIBONDRIN [Concomitant]
     Active Substance: DIPHENHYDRAMINE HYDROCHLORIDE
     Dates: start: 20180426, end: 20180817
  9. TRASTUZUMAB. [Suspect]
     Active Substance: TRASTUZUMAB
     Indication: BREAST CANCER METASTATIC
     Dosage: MOST RECENT DOSE PRIOR TO THE EVENT: 17/MAY/2018?MOST RECENT DOSE PRIOR TO THE EVENT: 25/APR/2018
     Route: 042
     Dates: start: 20180425
  10. EMEND [Concomitant]
     Active Substance: APREPITANT
     Dates: start: 20180426, end: 20180817
  11. TRASTUZUMAB EMTANSINE [Suspect]
     Active Substance: ADO-TRASTUZUMAB EMTANSINE
     Indication: BREAST CANCER METASTATIC
     Dosage: ON 19/JUL/2019, MOST RECENT DOSE OF TRASTUZUMAB EMTANSINE
     Route: 042
     Dates: start: 20190222, end: 20190719
  12. DENOSUMAB [Suspect]
     Active Substance: DENOSUMAB
     Indication: BREAST CANCER METASTATIC
     Route: 058
     Dates: start: 20180502
  13. DENOSUMAB [Suspect]
     Active Substance: DENOSUMAB
     Route: 065
     Dates: start: 20180618, end: 20191116
  14. PANTOLOC [Concomitant]
     Active Substance: PANTOPRAZOLE SODIUM
     Dosage: ONGOING = CHECKED
     Dates: end: 20191116
  15. PENTASA [Concomitant]
     Active Substance: MESALAMINE
     Dosage: ONGOING = NOT CHECKED
     Dates: end: 20191116
  16. ULSAL [Concomitant]
     Active Substance: RANITIDINE HYDROCHLORIDE
     Dates: start: 20180426, end: 20180817
  17. FORTECORTIN [Concomitant]
     Active Substance: DEXAMETHASONE
     Dates: start: 20180426, end: 20180817

REACTIONS (13)
  - Diarrhoea [Not Recovered/Not Resolved]
  - Headache [Not Recovered/Not Resolved]
  - Anxiety [Recovered/Resolved]
  - Thoracic vertebral fracture [Not Recovered/Not Resolved]
  - Weight decreased [Recovered/Resolved]
  - Abdominal distension [Not Recovered/Not Resolved]
  - Hypokalaemia [Not Recovered/Not Resolved]
  - Fistula [Recovered/Resolved]
  - Dyspnoea [Not Recovered/Not Resolved]
  - Vomiting [Not Recovered/Not Resolved]
  - General physical health deterioration [Recovered/Resolved]
  - General physical health deterioration [Not Recovered/Not Resolved]
  - Oedema peripheral [Not Recovered/Not Resolved]

NARRATIVE: CASE EVENT DATE: 20180611
